FAERS Safety Report 22252360 (Version 1)
Quarter: 2023Q2

REPORT INFORMATION
  Report Type: Spontaneous
  Country: CN (occurrence: CN)
  Receive Date: 20230426
  Receipt Date: 20230426
  Transmission Date: 20230721
  Serious: Yes (Hospitalization, Other)
  Sender: FDA-Public Use
  Company Number: CN-ABBVIE-4741528

PATIENT
  Age: 70 Year
  Sex: Female

DRUGS (4)
  1. VENCLEXTA [Suspect]
     Active Substance: VENETOCLAX
     Indication: Acute monocytic leukaemia
     Dosage: 400 MILLIGRAM
     Route: 048
     Dates: start: 20230328, end: 20230407
  2. INTERFERON ALFA-1B [Suspect]
     Active Substance: INTERFERON ALFA-1B
     Indication: Acute monocytic leukaemia
     Dosage: 50 MICROGRAM
     Route: 058
     Dates: start: 20230328, end: 20230404
  3. DECITABINE [Suspect]
     Active Substance: DECITABINE
     Indication: Acute monocytic leukaemia
     Route: 041
     Dates: start: 20230328, end: 20230401
  4. PEGINTRON [Suspect]
     Active Substance: PEGINTERFERON ALFA-2B
     Indication: Acute monocytic leukaemia
     Route: 058
     Dates: start: 20230405, end: 20230405

REACTIONS (1)
  - Myelosuppression [Recovering/Resolving]

NARRATIVE: CASE EVENT DATE: 20230409
